FAERS Safety Report 24366805 (Version 1)
Quarter: 2024Q3

REPORT INFORMATION
  Report Type: Spontaneous
  Country: FR (occurrence: FR)
  Receive Date: 20240926
  Receipt Date: 20240926
  Transmission Date: 20241017
  Serious: Yes (Hospitalization, Other)
  Sender: B BRAUN
  Company Number: FR-B.Braun Medical Inc.-2162061

PATIENT
  Age: 82 Year
  Sex: Male
  Weight: 85 kg

DRUGS (4)
  1. METRONIDAZOLE [Suspect]
     Active Substance: METRONIDAZOLE
     Indication: Cholangitis acute
  2. PIPERACILLIN SODIUM\TAZOBACTAM SODIUM [Suspect]
     Active Substance: PIPERACILLIN SODIUM\TAZOBACTAM SODIUM
  3. LINEZOLID [Suspect]
     Active Substance: LINEZOLID
  4. DAPTOMYCIN [Suspect]
     Active Substance: DAPTOMYCIN

REACTIONS (1)
  - Pancytopenia [Not Recovered/Not Resolved]
